FAERS Safety Report 7517957-2 (Version None)
Quarter: 2011Q2

REPORT INFORMATION
  Report Type: 
  Country: None (occurrence: None)
  Receive Date: 20110527
  Receipt Date: 20110527
  Transmission Date: 20111010
  Serious: Yes (Life-Threatening, Hospitalization)
  Sender: FDA-Public Use
  Company Number: None

PATIENT
  Sex: Male
  Weight: 79.5 kg

DRUGS (2)
  1. INVEGA SUSTENNA [Suspect]
     Dosage: 156 MG 1 IM
     Route: 030
     Dates: start: 20110323
  2. INVEGA SUSTENNA [Suspect]
     Indication: SCHIZOPHRENIA
     Dosage: 234 MG 1 IM
     Route: 030
     Dates: start: 20110316

REACTIONS (5)
  - HYPOTHERMIA [None]
  - DEHYDRATION [None]
  - URINARY INCONTINENCE [None]
  - ATRIOVENTRICULAR BLOCK FIRST DEGREE [None]
  - DELIRIUM [None]
